FAERS Safety Report 7946393-X (Version None)
Quarter: 2011Q4

REPORT INFORMATION
  Report Type: 
  Country: None (occurrence: None)
  Receive Date: 20111129
  Receipt Date: 20111123
  Transmission Date: 20120403
  Serious: Yes (Life-Threatening)
  Sender: FDA-Public Use
  Company Number: DE-MERCK-1110DEU00079

PATIENT
  Age: 57 Year
  Sex: Male
  Weight: 140 kg

DRUGS (19)
  1. BISACODYL [Concomitant]
     Route: 065
  2. NEOSTIGMINE BROMIDE [Concomitant]
     Route: 051
  3. SUFENTANIL CITRATE [Concomitant]
     Route: 051
  4. IMIPENEM [Concomitant]
     Route: 042
     Dates: start: 20110911, end: 20110920
  5. ANIDULAFUNGIN [Suspect]
     Indication: CANDIDA SEPSIS
     Route: 042
     Dates: start: 20111019, end: 20111001
  6. IPRATROPIUM BROMIDE [Concomitant]
     Route: 055
  7. ALBUTEROL [Concomitant]
     Route: 055
  8. NOREPINEPHRINE HYDROCHLORIDE [Concomitant]
     Route: 042
  9. AMINO ACIDS (UNSPECIFIED) AND CARBOHYDRATES (UNSPECIFIED) AND ELECTROL [Concomitant]
     Route: 042
  10. PROPOFOL [Concomitant]
     Route: 042
  11. CLONIDINE HYDROCHLORIDE [Concomitant]
     Route: 042
  12. CANCIDAS [Suspect]
     Indication: CANDIDA SEPSIS
     Route: 042
     Dates: start: 20110907, end: 20110927
  13. ANIDULAFUNGIN [Suspect]
     Route: 042
     Dates: start: 20111001, end: 20111021
  14. ACETYLCYSTEINE [Concomitant]
     Route: 065
  15. METOCLOPRAMIDE HYDROCHLORIDE [Concomitant]
     Route: 065
  16. POTASSIUM CHLORIDE [Concomitant]
     Route: 065
  17. PANTOPRAZOLE SODIUM [Concomitant]
     Route: 065
  18. INSULIN HUMAN [Concomitant]
     Route: 058
  19. HEPARIN [Concomitant]
     Route: 058

REACTIONS (4)
  - ACUTE HEPATIC FAILURE [None]
  - LIVER INJURY [None]
  - HAEMATOMA INFECTION [None]
  - ILEUS PARALYTIC [None]
